FAERS Safety Report 6188446-5 (Version None)
Quarter: 2009Q2

REPORT INFORMATION
  Report Type: 
  Country: None (occurrence: None)
  Receive Date: 20090513
  Receipt Date: 20090507
  Transmission Date: 20091009
  Serious: Yes (Hospitalization, Other)
  Sender: FDA-Public Use
  Company Number: JP-BAYER-200911341BYL

PATIENT
  Age: 77 Year
  Sex: Male

DRUGS (2)
  1. NEXAVAR [Suspect]
     Indication: HEPATIC NEOPLASM MALIGNANT
     Route: 048
     Dates: start: 20090416, end: 20090421
  2. CISPLATIN [Concomitant]
     Indication: HEPATIC NEOPLASM MALIGNANT
     Route: 025

REACTIONS (4)
  - ANOREXIA [None]
  - GASTROINTESTINAL HAEMORRHAGE [None]
  - PORTAL VEIN THROMBOSIS [None]
  - PYREXIA [None]
